FAERS Safety Report 5073569-4 (Version None)
Quarter: 2006Q3

REPORT INFORMATION
  Report Type: 
  Country: None (occurrence: None)
  Receive Date: 20060717
  Receipt Date: 20060117
  Transmission Date: 20061208
  Serious: No
  Sender: FDA-Public Use
  Company Number: 2006000149

PATIENT
  Age: 86 Year
  Sex: Male
  Weight: 55.7924 kg

DRUGS (2)
  1. TARCEVA [Suspect]
     Dosage: SEE IMAGE
     Route: 048
     Dates: start: 20051201
  2. TARCEVA [Suspect]
     Dosage: SEE IMAGE
     Route: 048
     Dates: start: 20060209

REACTIONS (7)
  - ANOREXIA [None]
  - CONFUSIONAL STATE [None]
  - DIARRHOEA [None]
  - EYE IRRITATION [None]
  - FATIGUE [None]
  - RASH [None]
  - RESPIRATORY TRACT INFECTION [None]
